FAERS Safety Report 4552663-8 (Version None)
Quarter: 2005Q1

REPORT INFORMATION
  Report Type: 
  Country: None (occurrence: None)
  Receive Date: 20050114
  Receipt Date: 20050105
  Transmission Date: 20050727
  Serious: Yes (Other)
  Sender: FDA-Public Use
  Company Number: PHBS2005JP00665

PATIENT
  Age: 34 Year
  Sex: Female

DRUGS (3)
  1. CARBAMAZEPINE [Suspect]
     Indication: EPILEPSY
     Route: 065
  2. PRIMIDONE [Suspect]
     Indication: EPILEPSY
  3. PHENOBARBITAL [Suspect]
     Indication: EPILEPSY

REACTIONS (7)
  - ABORTION THREATENED [None]
  - CONVULSION [None]
  - DRUG EXPOSURE DURING PREGNANCY [None]
  - FORCEPS DELIVERY [None]
  - NORMAL NEWBORN [None]
  - PAIN [None]
  - UMBILICAL CORD ABNORMALITY [None]
